FAERS Safety Report 6702301-0 (Version None)
Quarter: 2010Q2

REPORT INFORMATION
  Report Type: 
  Country: None (occurrence: None)
  Receive Date: 20100429
  Receipt Date: 20100423
  Transmission Date: 20101027
  Serious: Yes (Other)
  Sender: FDA-Public Use
  Company Number: JP-BRISTOL-MYERS SQUIBB COMPANY-15074545

PATIENT
  Age: 62 Year
  Sex: Female

DRUGS (1)
  1. IRBETAN [Suspect]
     Indication: HYPERTENSION
     Route: 048
     Dates: start: 20091224

REACTIONS (2)
  - SUPRAVENTRICULAR TACHYCARDIA [None]
  - VENTRICULAR TACHYCARDIA [None]
